FAERS Safety Report 4756789-5 (Version None)
Quarter: 2005Q3

REPORT INFORMATION
  Report Type: 
  Country: None (occurrence: None)
  Receive Date: 20050826
  Receipt Date: 20001110
  Transmission Date: 20060218
  Serious: Yes (Other)
  Sender: FDA-Public Use
  Company Number: KII-2000-0013644

PATIENT

DRUGS (2)
  1. OXYCONTIN [Suspect]
     Indication: PAIN
     Dosage: 40 MG, Q12H
  2. PERCOCET [Suspect]
     Indication: PAIN
     Dosage: 10 MG, Q4H

REACTIONS (1)
  - DRUG DEPENDENCE [None]
